FAERS Safety Report 9353025 (Version 1)
Quarter: 2013Q2

REPORT INFORMATION
  Report Type: Spontaneous
  Country: CN (occurrence: HK)
  Receive Date: 20130618
  Receipt Date: 20130618
  Transmission Date: 20140414
  Serious: Yes (Other)
  Sender: FDA-Public Use
  Company Number: CN-MYLANLABS-2013S1012457

PATIENT
  Age: 58 Year
  Sex: Male

DRUGS (2)
  1. OMEPRAZOLE [Suspect]
     Indication: CHEST PAIN
     Route: 065
  2. TRIMETAZIDINE [Suspect]
     Indication: CHEST PAIN
     Route: 065

REACTIONS (2)
  - Constipation [Recovered/Resolved]
  - Retinopathy haemorrhagic [Recovered/Resolved]
